FAERS Safety Report 8661826 (Version 2)
Quarter: 2013Q4

REPORT INFORMATION
  Report Type: Spontaneous
  Country: JP (occurrence: JP)
  Receive Date: 20120712
  Receipt Date: 20131101
  Transmission Date: 20140711
  Serious: Yes (Hospitalization)
  Sender: FDA-Public Use
  Company Number: JP-009507513-1207JPN000228

PATIENT
  Age: 49 Year
  Sex: Male

DRUGS (2)
  1. PEGINTRON [Suspect]
     Dosage: DAILY DOSE UNKNOWN
     Route: 058
     Dates: start: 20120105, end: 201206
  2. REBETOL [Suspect]
     Dosage: THE DIVIDED DOSE FREQUENCY IS UNCERTAIN.
     Route: 048
     Dates: start: 20120105, end: 201206

REACTIONS (1)
  - Optic neuritis [Unknown]
